FAERS Safety Report 10021391 (Version 1)
Quarter: 2014Q1

REPORT INFORMATION
  Report Type: Spontaneous
  Country: FR (occurrence: FR)
  Receive Date: 20140319
  Receipt Date: 20140319
  Transmission Date: 20141002
  Serious: Yes (Hospitalization)
  Sender: FDA-Public Use
  Company Number: FR-ASTRAZENECA-2014SE17520

PATIENT
  Age: 31625 Day
  Sex: Female

DRUGS (5)
  1. MOPRAL [Suspect]
     Route: 048
     Dates: end: 20131209
  2. COAPROVEL [Suspect]
     Dosage: 150 MG / 12.5 MG
     Route: 048
     Dates: end: 20131209
  3. ATARAX [Concomitant]
  4. PREVISCAN [Concomitant]
  5. DAFALGAN [Concomitant]

REACTIONS (4)
  - Hyponatraemia [Not Recovered/Not Resolved]
  - Abdominal pain [Unknown]
  - Hypoalbuminaemia [Unknown]
  - Malnutrition [Unknown]
